FAERS Safety Report 22636077 (Version 4)
Quarter: 2023Q4

REPORT INFORMATION
  Report Type: Spontaneous
  Country: US (occurrence: US)
  Receive Date: 20230623
  Receipt Date: 20231228
  Transmission Date: 20240110
  Serious: Yes (Death)
  Sender: FDA-Public Use
  Company Number: US-ABBVIE-5302422

PATIENT
  Sex: Male

DRUGS (35)
  1. VENCLEXTA [Suspect]
     Active Substance: VENETOCLAX
     Indication: Chronic myelomonocytic leukaemia
     Dosage: FORM STRENGTH: 100 MILLIGRAM?TAKE 4 TABLET(S) BY MOUTH EVERY DAY
     Route: 048
     Dates: start: 202306
  2. ZOFRAN [Concomitant]
     Active Substance: ONDANSETRON HYDROCHLORIDE
     Indication: Nausea
     Dosage: TAKE 1 TAB (8 MG) BY MOUTH - 1 HOUR PRIOR TO INJECTION??FORM STRENGTH: 8 MILLIGRAM
     Dates: start: 20230601
  3. TRIAMCINOLONE ACETONIDE [Concomitant]
     Active Substance: TRIAMCINOLONE ACETONIDE
     Indication: Product used for unknown indication
     Dosage: 0.1 % LOTION; APPLY TO TRUNK 2 TO 3 DAYS A WEEK?FORM STRENGTH: 0.1 PERCENT?FIRST ADMIN DATE- 25 O...
  4. TRIAMCINOLONE ACETONIDE [Concomitant]
     Active Substance: TRIAMCINOLONE ACETONIDE
     Indication: Product used for unknown indication
     Dosage: APPLY TOPLCALLY TO TRUNK 2 TO 3 DAYS EVERY WEEK?FORM STRENGTH: 0.1 PERCENT?FIRST ADMIN DATE- 3 MA...
  5. TRIAMCINOLONE ACETONIDE [Concomitant]
     Active Substance: TRIAMCINOLONE ACETONIDE
     Indication: Product used for unknown indication
     Dosage: FORM STRENGTH: 0.1 PERCENT?FIRST ADMIN DATE- 22 JAN 2021
  6. MUCINEX DM [Concomitant]
     Active Substance: DEXTROMETHORPHAN HYDROBROMIDE\GUAIFENESIN
     Indication: Product used for unknown indication
     Dosage: TIME INTERVAL: AS NECESSARY: PO AS NEEDED. PRN
     Route: 048
  7. SYNTHROID [Concomitant]
     Active Substance: LEVOTHYROXINE SODIUM
     Indication: Product used for unknown indication
     Dosage: TAKE 1 TABLET BY MOUTH EVERY DAY?FORM STRENGTH: 150 MICROGRAM?FIRST ADMIN DATE- 6 JUN 2022
     Route: 048
  8. NYSTATIN [Concomitant]
     Active Substance: NYSTATIN
     Indication: Product used for unknown indication
     Dosage: 100000 UNIT/GM CREAM?FIRST ADMIN DATE- 27 AUG 2021
  9. LIDOCAINE [Concomitant]
     Active Substance: LIDOCAINE
     Indication: Product used for unknown indication
     Dosage: 4 % PATCH PRN
  10. POLYSPORIN [Concomitant]
     Active Substance: BACITRACIN ZINC\POLYMYXIN B SULFATE
     Indication: Product used for unknown indication
     Dosage: 500- 10000 UNIT/GM OINTMENT
  11. GLUCOTROL XL [Concomitant]
     Active Substance: GLIPIZIDE
     Indication: Product used for unknown indication
     Dosage: 5 MG 24HR ER TABLET; TAKE 1 TABLET BY MOUTH EVERY DAY?FIRST ADMIN DATE- 2 MAY 2023
     Route: 048
  12. PROCHLORPERAZINE MALEATE [Concomitant]
     Active Substance: PROCHLORPERAZINE MALEATE
     Indication: Nausea
     Dosage: TAKE 1 TAB BY MOUTH EVERY 6 HOURS AS NEEDED?FORM STRENGTH: 10 MILLIGRAM
     Route: 048
     Dates: start: 20230601
  13. DIFLUCAN [Concomitant]
     Active Substance: FLUCONAZOLE
     Indication: Neutropenia
     Dosage: 2 TABS BY MOUTH ONE TIME DAILY CONTINUE UNTIL RESOLUTION OF NEUTROPENIA. TAKE  UNTIL ANC} 500?TAK...
     Route: 048
     Dates: start: 20230601
  14. AQUAPHOR [Concomitant]
     Active Substance: PETROLATUM
     Indication: Product used for unknown indication
     Dosage: HEALING OINTMENT PRN.?EXTERNAL
  15. ZOVIRAX [Concomitant]
     Active Substance: ACYCLOVIR
     Indication: Product used for unknown indication
     Dosage: TAKE 1 TAB BY MOUTH 2 TIMES DAILY. PURPOSE: PREVENT?FORM STRENGTH: 400 MILLIGRAM
     Route: 048
     Dates: start: 20230601
  16. SIMILASAN FOR INFLAMMATION OF THE MOUTH AND THROAT [Concomitant]
     Active Substance: HOMEOPATHICS
     Indication: Dry eye
  17. NEURONTIN [Concomitant]
     Active Substance: GABAPENTIN
     Indication: Product used for unknown indication
     Dosage: TAKE 2 CAPS BY MOUTH ONE TIME DAILY?FORM STRENGTH: 300 MILLIGRAM?FIRST ADMIN DATE- 24 JAN 2019
     Route: 048
  18. MELATONIN [Concomitant]
     Active Substance: MELATONIN
     Indication: Product used for unknown indication
     Dosage: TAKE BY MOUTH ONE TIME DAILY AT BEDTIME?FORM STRENGTH: 5 MILLIGRAM
     Route: 048
  19. GOLD BOND ORIGINAL STRENGTH POWDER [Concomitant]
     Active Substance: MENTHOL\ZINC OXIDE
     Indication: Product used for unknown indication
     Dosage: TOPICAL POWDER
  20. HERBALS [Concomitant]
     Active Substance: HERBALS
     Indication: Product used for unknown indication
     Dosage: ADVANCED CHOLESTEROL SOLUTION 1 CAP PO WITH EVENING MEAL?HERBAL MEDICATION
     Route: 048
  21. HERBALS [Concomitant]
     Active Substance: HERBALS
     Indication: Product used for unknown indication
     Dosage: BRAIN SHARP 3 CAPSULES DAILY?HERBAL MEDICATION
     Route: 048
  22. HERBALS [Concomitant]
     Active Substance: HERBALS
     Indication: Product used for unknown indication
     Dosage: BETA 1.3/1.5 D-GLUCAN 100MG 1 CAP TWICE DAILY?HERBAL MEDICATION
     Route: 048
  23. LEVAQUIN [Concomitant]
     Active Substance: LEVOFLOXACIN
     Indication: Infection prophylaxis
     Dosage: TAKE 1 TAB BY MOUTH ONE TIME DAILY UNTIL ANC GREATER THAN 500 AFTER NADIR..?FORM STRENGTH: 500 MI...
     Route: 048
     Dates: start: 20230601
  24. ASCORBIC ACID\VITAMIN B COMPLEX [Concomitant]
     Active Substance: ASCORBIC ACID\VITAMIN B COMPLEX
     Indication: Product used for unknown indication
     Dosage: TAKE 1 TAB BY MOUTH ONE TIME DAILY?FIRST ADMIN DATE- 9 JAN 2008
     Route: 048
  25. ZYLOPRIM [Concomitant]
     Active Substance: ALLOPURINOL
     Indication: Prophylaxis
     Dosage: 1 TAB BY MOUTH ONE TIME DAILY START 2 TO 3 DAYS BEFORE INITIATION OF VENETOCLAX.?TAKE 1 TAB BY MO...
     Route: 048
     Dates: start: 20230601
  26. GLUCOPHAGE [Concomitant]
     Active Substance: METFORMIN HYDROCHLORIDE
     Indication: Product used for unknown indication
     Dosage: TAKE 2 TABLETS BY MOUTH TWICE DAILY?- FORM STRENGTH: 500 : MILLIGRAM?FIRST ADMIN DATE- 12 MAY 2023
     Route: 048
  27. Triad hydrophilic wound dressing [Concomitant]
     Indication: Wound treatment
     Dosage: TIME INTERVAL: AS NECESSARY: AS NEEDED FOR WOUND TREATMENT?EXTERNAL
  28. CETAPHIL DAILY FACIAL MOISTURIZER WITH SUNCREEN SPF 50 [Concomitant]
     Active Substance: OCTINOXATE\OCTISALATE\OCTOCRYLENE\OXYBENZONE\TITANIUM DIOXIDE
     Indication: Product used for unknown indication
     Dosage: CETAPHIL MOISTURIZING CREAM
  29. FLONASE [Concomitant]
     Active Substance: FLUTICASONE PROPIONATE
     Indication: Product used for unknown indication
     Dosage: 50 MCG/ACT NASAL SPRAY;SHAKE LIQUID AND USE 1 SPRAY IN EACH NOSTRIL TWICE DAILY?FIRST ADMIN DATE-...
  30. MECLIZINE HYDROCHLORIDE [Concomitant]
     Active Substance: MECLIZINE HYDROCHLORIDE
     Indication: Dizziness
     Dosage: TIME INTERVAL: 0.33333333 DAYS: TAKE 1 TABLET BY MOUTH THREE TIMES DAILY AS NEEDED FOR DIZZINESS?...
     Route: 048
  31. LISINOPRIL [Concomitant]
     Active Substance: LISINOPRIL
     Indication: Product used for unknown indication
     Dosage: 1 TAB?FORM STRENGTH: 20 MILLIGRAM?FIRST ADMIN DATE- 3 APR 2023
  32. MOTRIN [Concomitant]
     Active Substance: IBUPROFEN
     Indication: Product used for unknown indication
     Dosage: TIME INTERVAL: AS NECESSARY: 1-2 TABS AS NEEDED?FORM STRENGTH: 200 MILLIGRAM
  33. ANTACID [Concomitant]
     Active Substance: ALUMINUM HYDROXIDE\CALCIUM CARBONATE\DIMETHICONE\MAGNESIUM HYDROXIDE
     Indication: Product used for unknown indication
     Dosage: PO 2 TABS PRN?ANTACID ADVANCED
     Route: 048
  34. FISH OIL [Concomitant]
     Active Substance: FISH OIL
     Indication: Product used for unknown indication
     Dosage: TAKE 2 G BY MOUTH 2 TIMES DAILY AT MEALTIME WITH VITAMIN D 1000 IU?FORM STRENGTH: 1 GRAM?FIRST AD...
     Route: 048
  35. NORVASC [Concomitant]
     Active Substance: AMLODIPINE BESYLATE
     Indication: Product used for unknown indication
     Dosage: TAKE  1 TABLET BY MOUTH IN THE MORNING AND IN THE EVENING?FORM STRENGTH: 5 : MILLIGRAM?FIRST ADMI...
     Route: 048

REACTIONS (5)
  - Death [Fatal]
  - Dyspnoea [Unknown]
  - Off label use [Unknown]
  - Foreign body in throat [Unknown]
  - Cough [Unknown]

NARRATIVE: CASE EVENT DATE: 20230101
